FAERS Safety Report 20161137 (Version 2)
Quarter: 2021Q4

REPORT INFORMATION
  Report Type: Report from Study
  Country: IL (occurrence: IL)
  Receive Date: 20211208
  Receipt Date: 20211220
  Transmission Date: 20220303
  Serious: Yes (Hospitalization, Other)
  Sender: FDA-Public Use
  Company Number: IL-TAKEDA-2021TUS047856

PATIENT
  Age: 41 Year
  Sex: Male

DRUGS (11)
  1. PARATHYROID HORMONE [Suspect]
     Active Substance: PARATHYROID HORMONE
     Indication: Hypothyroidism
     Dosage: 50 MICROGRAM, QD
     Route: 065
     Dates: start: 20210727
  2. PARATHYROID HORMONE [Suspect]
     Active Substance: PARATHYROID HORMONE
     Indication: Hypothyroidism
     Dosage: 50 MICROGRAM, QD
     Route: 065
     Dates: start: 20210727
  3. PARATHYROID HORMONE [Suspect]
     Active Substance: PARATHYROID HORMONE
     Indication: Hypothyroidism
     Dosage: 50 MICROGRAM, QD
     Route: 065
     Dates: start: 20210727
  4. PARATHYROID HORMONE [Suspect]
     Active Substance: PARATHYROID HORMONE
     Dosage: 50 MICROGRAM, QD
     Route: 065
     Dates: start: 20210727
  5. PARATHYROID HORMONE [Suspect]
     Active Substance: PARATHYROID HORMONE
     Dosage: 50 MICROGRAM, QD
     Route: 065
     Dates: start: 20210727
  6. PARATHYROID HORMONE [Suspect]
     Active Substance: PARATHYROID HORMONE
     Dosage: 50 MICROGRAM, QD
     Route: 065
     Dates: start: 20210727
  7. FORTEO [Concomitant]
     Active Substance: TERIPARATIDE
     Route: 065
  8. CALCIUM [Concomitant]
     Active Substance: CALCIUM
     Dosage: 9 DOSAGE FORM, QD
     Route: 065
  9. PREDNISONE [Concomitant]
     Active Substance: PREDNISONE
     Route: 065
  10. IRON [Concomitant]
     Active Substance: IRON
     Route: 065
  11. VITAMIN D [Concomitant]
     Active Substance: VITAMIN D NOS
     Route: 065

REACTIONS (12)
  - Gastrointestinal infection [Unknown]
  - Blood calcium decreased [Unknown]
  - Dizziness [Recovered/Resolved]
  - Tremor [Recovered/Resolved]
  - Myalgia [Not Recovered/Not Resolved]
  - Product dosage form issue [Unknown]
  - Product packaging quantity issue [Unknown]
  - Device malfunction [Unknown]
  - Device leakage [Unknown]
  - Device issue [Unknown]
  - Product use in unapproved indication [Unknown]
  - Wrong technique in device usage process [Unknown]

NARRATIVE: CASE EVENT DATE: 20210728
